FAERS Safety Report 7734733-6 (Version None)
Quarter: 2011Q3

REPORT INFORMATION
  Report Type: 
  Country: None (occurrence: None)
  Receive Date: 20110907
  Receipt Date: 20110830
  Transmission Date: 20111222
  Serious: Yes (Hospitalization)
  Sender: FDA-Public Use
  Company Number: US-ACTELION-A-US2011-52663

PATIENT

DRUGS (9)
  1. TESTOSTERONE CYPIONATE [Concomitant]
  2. REVATIO [Concomitant]
  3. SOTALOL HCL [Concomitant]
  4. LASIX [Concomitant]
  5. TRACLEER [Suspect]
     Indication: PULMONARY ARTERIAL HYPERTENSION
     Dosage: 125 MG, BID
     Route: 048
     Dates: start: 20081128
  6. POTASSIUM CHLORIDE [Concomitant]
  7. NORCO [Concomitant]
  8. BACLOFEN [Concomitant]
  9. SIMVASTATIN [Concomitant]

REACTIONS (3)
  - KNEE OPERATION [None]
  - ARTHRALGIA [None]
  - OSTEOARTHRITIS [None]
